FAERS Safety Report 6233772-4 (Version None)
Quarter: 2009Q2

REPORT INFORMATION
  Report Type: 
  Country: None (occurrence: None)
  Receive Date: 20090615
  Receipt Date: 20090615
  Transmission Date: 20091009
  Serious: Yes (Hospitalization, Disabling)
  Sender: FDA-Public Use
  Company Number: None

PATIENT
  Age: 45 Year
  Sex: Male
  Weight: 93.2 kg

DRUGS (2)
  1. LEVOFLOXACIN [Suspect]
     Indication: URINARY TRACT INFECTION
     Dosage: 500 1 A DAY 047
     Dates: start: 20090124
  2. LEVOFLOXACIN [Suspect]
     Indication: URINARY TRACT INFECTION
     Dosage: 500 1 A DAY 047
     Dates: start: 20090205

REACTIONS (12)
  - ABASIA [None]
  - ABDOMINAL PAIN UPPER [None]
  - BRONCHITIS [None]
  - BURNING SENSATION [None]
  - HYPOHIDROSIS [None]
  - IMPAIRED WORK ABILITY [None]
  - KERATOCONJUNCTIVITIS SICCA [None]
  - MYODESOPSIA [None]
  - NERVOUS SYSTEM DISORDER [None]
  - TENDON INJURY [None]
  - TENDONITIS [None]
  - TINNITUS [None]
